FAERS Safety Report 15710622 (Version 1)
Quarter: 2018Q4

REPORT INFORMATION
  Report Type: Spontaneous
  Country: GB (occurrence: GB)
  Receive Date: 20181211
  Receipt Date: 20181211
  Transmission Date: 20190205
  Serious: Yes (Hospitalization)
  Sender: FDA-Public Use
  Company Number: GB-009507513-1812GBR004829

PATIENT
  Age: 38 Year
  Sex: Male

DRUGS (12)
  1. MIRTAZAPINE. [Suspect]
     Active Substance: MIRTAZAPINE
     Dosage: NIGHT
  2. QUETIAPINE FUMARATE. [Suspect]
     Active Substance: QUETIAPINE FUMARATE
     Dosage: THREE TIMES A DAY.
  3. DIAZEPAM. [Suspect]
     Active Substance: DIAZEPAM
     Dosage: ONE DAILY OR AS NECESSARY.
  4. DIAZEPAM. [Suspect]
     Active Substance: DIAZEPAM
     Dosage: UP TO 28X5MG.
  5. MIRTAZAPINE. [Suspect]
     Active Substance: MIRTAZAPINE
     Dosage: UP TO 28X45MG.
  6. QUETIAPINE FUMARATE. [Suspect]
     Active Substance: QUETIAPINE FUMARATE
     Dosage: UP TO 28X300MG.
  7. ZOPICLONE [Suspect]
     Active Substance: ZOPICLONE
     Dosage: AT NIGHT.
  8. ZOPICLONE [Suspect]
     Active Substance: ZOPICLONE
     Dosage: UP TO 28X7.5MG
  9. QUETIAPINE FUMARATE. [Suspect]
     Active Substance: QUETIAPINE FUMARATE
     Dosage: UP TO 28X25MG.
  10. PREGABALIN. [Suspect]
     Active Substance: PREGABALIN
     Dosage: 400 MILLIGRAM, QD
  11. PREGABALIN. [Suspect]
     Active Substance: PREGABALIN
     Dosage: UP TO 523X200MG.
  12. QUETIAPINE FUMARATE. [Suspect]
     Active Substance: QUETIAPINE FUMARATE
     Dosage: 300 MILLIGRAM, QD

REACTIONS (2)
  - Intentional overdose [Recovering/Resolving]
  - Electrocardiogram QT prolonged [Unknown]

NARRATIVE: CASE EVENT DATE: 20181118
